FAERS Safety Report 7005450-5 (Version None)
Quarter: 2010Q3

REPORT INFORMATION
  Report Type: 
  Country: None (occurrence: None)
  Receive Date: 20100902
  Receipt Date: 20100601
  Transmission Date: 20110219
  Serious: Yes (Disabling, Other)
  Sender: FDA-Public Use
  Company Number: 236561USA

PATIENT
  Sex: Female

DRUGS (1)
  1. METOCLOPRAMIDE [Suspect]
     Indication: IMPAIRED GASTRIC EMPTYING
     Dates: start: 20060101, end: 20090501

REACTIONS (7)
  - AKATHISIA [None]
  - BRADYKINESIA [None]
  - DYSKINESIA [None]
  - GAIT DISTURBANCE [None]
  - RESTLESS LEGS SYNDROME [None]
  - STEREOTYPY [None]
  - TARDIVE DYSKINESIA [None]
